FAERS Safety Report 9751934 (Version 1)
Quarter: 2013Q4

REPORT INFORMATION
  Report Type: Spontaneous
  Country: US (occurrence: US)
  Receive Date: 20131213
  Receipt Date: 20131213
  Transmission Date: 20140711
  Serious: No
  Sender: FDA-Public Use
  Company Number: US-009507513-1312USA004097

PATIENT
  Age: 23 Year
  Sex: Female

DRUGS (5)
  1. DEXAMETHASONE [Suspect]
     Indication: BURKITT^S LYMPHOMA
     Dosage: 40 MG/DAY PO OR IV FOR 8 DOSES ON DAYS 1-4 AND ON DAYS 11 -14
  2. CYCLOPHOSPHAMIDE [Concomitant]
     Indication: BURKITT^S LYMPHOMA
     Dosage: 300 MG/M2, OVER 2 HOURS EVERY 12 HOURS FOR 6 DOSES, ON DAYS 1-3
     Route: 042
  3. VINCRISTINE SULFATE [Concomitant]
     Indication: BURKITT^S LYMPHOMA
     Dosage: 2 MG/DOSE, PUSH OVER 2-3 MINUTES FOR 2 DOSES ON DAYS 4 AND 11
     Route: 042
  4. DOXORUBICIN [Concomitant]
     Indication: BURKITT^S LYMPHOMA
     Dosage: 50 MG/M2, OVER 2 HOURS ON DAY 4
     Route: 042
  5. MESNA [Concomitant]
     Indication: BURKITT^S LYMPHOMA
     Dosage: 600MG/M2, INFUSION OVER 24 HOURS, STARTING 1 HOUR BEFORE CYCLOPHOSPHAMIDE AND CONTINUING FOR 12 HOUR

REACTIONS (1)
  - Exposure during pregnancy [Recovered/Resolved]
